FAERS Safety Report 5839533-X (Version None)
Quarter: 2008Q3

REPORT INFORMATION
  Report Type: 
  Country: None (occurrence: None)
  Receive Date: 20080807
  Receipt Date: 20080728
  Transmission Date: 20090109
  Serious: Yes (Hospitalization, Other)
  Sender: FDA-Public Use
  Company Number: 15290

PATIENT
  Age: 49 Year
  Sex: Female
  Weight: 56.246 kg

DRUGS (11)
  1. MORPHINE SULFATE [Suspect]
     Indication: BACK PAIN
     Dosage: 60 MG 6 TIMES/DAY ORAL
     Route: 048
     Dates: start: 19990101
  2. METFORMIN HCL [Concomitant]
  3. TRAMADOL HCL [Concomitant]
  4. HYDRALAZINE HCL [Concomitant]
  5. PAXIL [Concomitant]
  6. PLAVIX [Concomitant]
  7. NOVASC [Concomitant]
  8. FUROSEMIDE [Concomitant]
  9. COREG [Concomitant]
  10. VICODIN [Concomitant]
  11. HUMULIN R [Concomitant]

REACTIONS (4)
  - HALLUCINATION [None]
  - HYPERSOMNIA [None]
  - MYOCARDIAL INFARCTION [None]
  - PHARMACEUTICAL PRODUCT COMPLAINT [None]
